FAERS Safety Report 4654483-2 (Version None)
Quarter: 2005Q2

REPORT INFORMATION
  Report Type: 
  Country: None (occurrence: None)
  Receive Date: 20050504
  Receipt Date: 20050504
  Transmission Date: 20051028
  Serious: No
  Sender: FDA-Public Use
  Company Number: None

PATIENT
  Age: 20 Year
  Sex: Female
  Weight: 63.5036 kg

DRUGS (1)
  1. PPD [Suspect]
     Indication: SKIN TEST
     Dates: start: 20050117, end: 20050117

REACTIONS (2)
  - PRURITUS [None]
  - RASH [None]
